FAERS Safety Report 21762605 (Version 1)
Quarter: 2022Q4

REPORT INFORMATION
  Report Type: Spontaneous
  Country: US (occurrence: None)
  Receive Date: 20221220
  Receipt Date: 20221220
  Transmission Date: 20230113
  Serious: No
  Sender: FDA-Public Use
  Company Number: None

PATIENT

DRUGS (2)
  1. ANTICOAGULANT CITRATE DEXTROSE SOLUTION-A [Suspect]
     Active Substance: CITRIC ACID MONOHYDRATE\DEXTROSE\SODIUM CITRATE
     Dosage: OTHER STRENGTH : 7.3G/1000ML, 24.5 ;?
     Route: 042
  2. ANTICOAGULANT SODIUM CITRATE SOLUTION [Suspect]
     Active Substance: TRISODIUM CITRATE DIHYDRATE
     Dosage: OTHER STRENGTH : 4G/100ML;?
     Route: 042

REACTIONS (4)
  - Product preparation error [None]
  - Product dispensing error [None]
  - Wrong product administered [None]
  - Product label confusion [None]
